FAERS Safety Report 4526713-9 (Version None)
Quarter: 2004Q4

REPORT INFORMATION
  Report Type: 
  Country: None (occurrence: None)
  Receive Date: 20041214
  Receipt Date: 20041207
  Transmission Date: 20050328
  Serious: Yes (Hospitalization)
  Sender: FDA-Public Use
  Company Number: US-JNJFOC-20041105375

PATIENT
  Age: 62 Year
  Sex: Male

DRUGS (2)
  1. DURAGESIC [Suspect]
     Indication: CANCER PAIN
     Route: 062
     Dates: end: 20030201
  2. FENTANYL [Suspect]
     Indication: DRUG USE FOR UNKNOWN INDICATION
     Route: 050
     Dates: start: 20030201, end: 20030201

REACTIONS (4)
  - AMNESIA [None]
  - CARDIAC ARREST [None]
  - LOSS OF CONSCIOUSNESS [None]
  - MEDICATION ERROR [None]
